FAERS Safety Report 6131587-9 (Version None)
Quarter: 2009Q1

REPORT INFORMATION
  Report Type: 
  Country: None (occurrence: None)
  Receive Date: 20090325
  Receipt Date: 20081204
  Transmission Date: 20090719
  Serious: No
  Sender: FDA-Public Use
  Company Number: US-BRISTOL-MYERS SQUIBB COMPANY-14402929

PATIENT
  Age: 57 Year
  Sex: Male
  Weight: 115 kg

DRUGS (5)
  1. ERBITUX [Suspect]
     Indication: HEAD AND NECK CANCER
     Dosage: WEEKLY DOSES OF 625MG IV STARTED ON 31OCT08 DOSE WAS HELD ON 07NOV08. HELD ON 14NOV08 AS WELL
     Route: 042
     Dates: start: 20081024, end: 20081024
  2. FLOMAX [Concomitant]
     Dates: start: 20081031
  3. HYDROCHLOROTHIAZIDE [Concomitant]
     Dates: start: 20081031
  4. BENADRYL [Concomitant]
     Indication: PREMEDICATION
     Route: 042
  5. DECADRON [Concomitant]
     Indication: PREMEDICATION
     Route: 042

REACTIONS (1)
  - NEUROPATHY PERIPHERAL [None]
